FAERS Safety Report 4607775-7 (Version None)
Quarter: 2005Q1

REPORT INFORMATION
  Report Type: 
  Country: None (occurrence: None)
  Receive Date: 20050314
  Receipt Date: 20050307
  Transmission Date: 20050727
  Serious: Yes (Hospitalization)
  Sender: FDA-Public Use
  Company Number: JP-GLAXOSMITHKLINE-B0374092A

PATIENT
  Age: 32 Year
  Sex: Female

DRUGS (7)
  1. FLOLAN [Suspect]
     Indication: PULMONARY HYPERTENSION
     Dosage: 2.5NGKM PER DAY
     Route: 042
     Dates: start: 20021011
  2. WARFARIN SODIUM [Suspect]
     Route: 048
  3. FUROSEMIDE [Concomitant]
     Route: 048
  4. SPIRONOLACTONE [Concomitant]
     Route: 048
  5. NIFEDIPINE [Concomitant]
     Route: 048
  6. IRON SUPPLEMENT [Concomitant]
     Route: 048
  7. LANIRAPID [Concomitant]
     Route: 048

REACTIONS (1)
  - HAEMOPTYSIS [None]
